FAERS Safety Report 26065027 (Version 1)
Quarter: 2025Q4

REPORT INFORMATION
  Report Type: Report from Study
  Country: CA (occurrence: CA)
  Receive Date: 20251119
  Receipt Date: 20251119
  Transmission Date: 20260118
  Serious: Yes (Other)
  Sender: ALEXION PHARMACEUTICALS
  Company Number: CA-AstraZeneca-CH-00991165A

PATIENT
  Sex: Female

DRUGS (6)
  1. OSIMERTINIB [Suspect]
     Active Substance: OSIMERTINIB
     Indication: Non-small cell lung cancer metastatic
     Dosage: 80 MILLIGRAM, QD
     Dates: start: 20250212
  2. Arrow Morphine LA [Concomitant]
  3. PANTOPRAZOLE [Concomitant]
     Active Substance: PANTOPRAZOLE
  4. DEXAMETHASONE [Concomitant]
     Active Substance: DEXAMETHASONE
  5. METOCLOPRAMIDE [Concomitant]
     Active Substance: METOCLOPRAMIDE
  6. Akynzeo [Concomitant]

REACTIONS (1)
  - General physical health deterioration [Unknown]
